FAERS Safety Report 4313888-X (Version None)
Quarter: 2004Q1

REPORT INFORMATION
  Report Type: 
  Country: None (occurrence: None)
  Receive Date: 20040302
  Receipt Date: 20030930
  Transmission Date: 20041129
  Serious: Yes (Death)
  Sender: FDA-Public Use
  Company Number: US011655

PATIENT
  Age: 39 Year
  Sex: Male
  Weight: 78.4723 kg

DRUGS (8)
  1. GABITRIL [Suspect]
     Indication: EPILEPSY
     Dosage: 4 MG QHS ORAL
     Route: 048
     Dates: start: 20020106, end: 20020505
  2. GABITRIL [Suspect]
     Indication: EPILEPSY
     Dosage: 16 MG TID ORAL
     Route: 048
     Dates: start: 20020506, end: 20021010
  3. GABITRIL [Suspect]
     Indication: EPILEPSY
     Dosage: 20 MG, QAM, ORAL
     Route: 048
     Dates: start: 20021011, end: 20030921
  4. GABITRIL [Suspect]
     Indication: EPILEPSY
     Dosage: 16 MG QPM ORAL
     Route: 048
     Dates: start: 20021011, end: 20030921
  5. GABITRIL [Suspect]
     Indication: EPILEPSY
     Dosage: 20 MG QHS ORAL
     Route: 048
     Dates: start: 20031011, end: 20030921
  6. KEPPRA [Suspect]
     Indication: EPILEPSY
     Dosage: 1500 MG QAM/PM ORAL
     Route: 048
  7. KEPPRA [Suspect]
     Indication: EPILEPSY
     Dosage: 1000 MG QPM ORAL
     Route: 048
  8. TRILEPTAL [Suspect]
     Indication: EPILEPSY
     Dosage: 900 MG BID ORAL
     Route: 048

REACTIONS (1)
  - SUDDEN DEATH [None]
